FAERS Safety Report 20428008 (Version 2)
Quarter: 2022Q1

REPORT INFORMATION
  Report Type: Other
  Country: US (occurrence: None)
  Receive Date: 20220204
  Receipt Date: 20220228
  Transmission Date: 20220423
  Serious: Yes (Hospitalization)
  Sender: FDA-Public Use
  Company Number: US-ROCHE-2960383

PATIENT
  Age: 71 Year
  Sex: Female
  Weight: 99.880 kg

DRUGS (4)
  1. OCREVUS [Suspect]
     Active Substance: OCRELIZUMAB
     Indication: Primary progressive multiple sclerosis
     Dosage: LAST OCREVUS TREATMENT: 17-AUG-2021
     Route: 042
     Dates: start: 20210803
  2. ELIQUIS [Concomitant]
     Active Substance: APIXABAN
     Indication: Pulmonary embolism
     Route: 048
     Dates: start: 202112
  3. ELIQUIS [Concomitant]
     Active Substance: APIXABAN
     Indication: Deep vein thrombosis
  4. MODERNA COVID-19 VACCINE [Concomitant]
     Active Substance: ELASOMERAN
     Dosage: 1ST MODERNA COVID VACCINE ON -06-APR-2021, 2ND MODERNA COVID VACCINE?ON 06-MAY-2021. MODERNA COVID B
     Dates: start: 20210406

REACTIONS (9)
  - Hip fracture [Recovered/Resolved]
  - Fall [Unknown]
  - Aortic valve stenosis [Not Recovered/Not Resolved]
  - Movement disorder [Unknown]
  - COVID-19 [Recovered/Resolved]
  - Illness [Recovered/Resolved]
  - Deep vein thrombosis [Recovered/Resolved]
  - Pulmonary embolism [Unknown]
  - Amnesia [Unknown]

NARRATIVE: CASE EVENT DATE: 20211010
